FAERS Safety Report 13906242 (Version 1)
Quarter: 2017Q3

REPORT INFORMATION
  Report Type: Spontaneous
  Country: US (occurrence: US)
  Receive Date: 20170825
  Receipt Date: 20170825
  Transmission Date: 20171127
  Serious: Yes (Life-Threatening, Other)
  Sender: FDA-Public Use
  Company Number: US-BRACCO-2017US03879

PATIENT
  Age: 30 Year
  Sex: Male

DRUGS (1)
  1. BARIUM SULPHATE [Suspect]
     Active Substance: BARIUM SULFATE
     Indication: BARIUM ENEMA
     Dosage: UNK, SINGLE

REACTIONS (2)
  - Acute kidney injury [Recovered/Resolved]
  - Rhabdomyolysis [Unknown]
